FAERS Safety Report 13660938 (Version 1)
Quarter: 2017Q2

REPORT INFORMATION
  Report Type: Spontaneous
  Country: US (occurrence: US)
  Receive Date: 20170616
  Receipt Date: 20170616
  Transmission Date: 20170830
  Serious: Yes (Other)
  Sender: FDA-Public Use
  Company Number: US-GLAXOSMITHKLINE-US2017087652

PATIENT
  Sex: Female

DRUGS (8)
  1. SENSODYNE PRONAMEL GENTLE WHITENING [Suspect]
     Active Substance: POTASSIUM NITRATE\SODIUM FLUORIDE
     Indication: SENSITIVITY OF TEETH
  2. SENSODYNE [Suspect]
     Active Substance: POTASSIUM NITRATE\SODIUM FLUORIDE
     Indication: DENTAL CARE
     Dosage: UNK
  3. SENSODYNE TRUE WHITE [Suspect]
     Active Substance: POTASSIUM NITRATE\SODIUM FLUORIDE
     Indication: SENSITIVITY OF TEETH
  4. SENSODYNE PRONAMEL STRONG AND BRIGHT ENAMEL EXTRA FRESH [Suspect]
     Active Substance: POTASSIUM NITRATE\SODIUM FLUORIDE
     Indication: DENTAL CARE
     Dosage: UNK
     Route: 048
     Dates: start: 201705
  5. SENSODYNE PRONAMEL STRONG AND BRIGHT ENAMEL EXTRA FRESH [Suspect]
     Active Substance: POTASSIUM NITRATE\SODIUM FLUORIDE
     Indication: SENSITIVITY OF TEETH
  6. SENSODYNE TRUE WHITE [Suspect]
     Active Substance: POTASSIUM NITRATE\SODIUM FLUORIDE
     Indication: DENTAL CARE
     Dosage: UNK
  7. SENSODYNE [Suspect]
     Active Substance: POTASSIUM NITRATE\SODIUM FLUORIDE
     Indication: SENSITIVITY OF TEETH
  8. SENSODYNE PRONAMEL GENTLE WHITENING [Suspect]
     Active Substance: POTASSIUM NITRATE\SODIUM FLUORIDE
     Indication: DENTAL CARE

REACTIONS (6)
  - Ageusia [Unknown]
  - Dysgeusia [Unknown]
  - Hospitalisation [Unknown]
  - Off label use [Unknown]
  - Drug ineffective [Unknown]
  - Anosmia [Unknown]
